FAERS Safety Report 10284230 (Version 3)
Quarter: 2014Q4

REPORT INFORMATION
  Report Type: Spontaneous
  Country: US (occurrence: US)
  Receive Date: 20140708
  Receipt Date: 20141121
  Transmission Date: 20150528
  Serious: Yes (Hospitalization, Other)
  Sender: FDA-Public Use
  Company Number: US-BAYER-2014-101575

PATIENT
  Age: 48 Year
  Sex: Female
  Weight: 68.27 kg

DRUGS (4)
  1. CLARITIN [Concomitant]
     Active Substance: LORATADINE
     Route: 048
  2. HAWTHORN [Concomitant]
     Dosage: 1200 MG, UNK
     Route: 048
  3. MILK THISTLE [Concomitant]
     Active Substance: MILK THISTLE
     Dosage: 200 MG, UNK
     Route: 048
  4. MIRENA [Suspect]
     Active Substance: LEVONORGESTREL
     Indication: CONTRACEPTION
     Dosage: 20 MCG/24HR, CONT
     Route: 015
     Dates: start: 20070328, end: 20091002

REACTIONS (11)
  - Depression [Not Recovered/Not Resolved]
  - Self esteem decreased [Not Recovered/Not Resolved]
  - Rectal perforation [None]
  - Medical device discomfort [None]
  - Scar [None]
  - Procedural pain [Not Recovered/Not Resolved]
  - Uterine perforation [None]
  - Injury [None]
  - Device issue [None]
  - Abdominal pain [None]
  - Anxiety [Not Recovered/Not Resolved]

NARRATIVE: CASE EVENT DATE: 2009
